FAERS Safety Report 9757898 (Version 3)
Quarter: 2014Q1

REPORT INFORMATION
  Report Type: Report from Study
  Country: US (occurrence: US)
  Receive Date: 20131216
  Receipt Date: 20140131
  Transmission Date: 20141002
  Serious: Yes (Other)
  Sender: FDA-Public Use
  Company Number: US-ROCHE-1264798

PATIENT
  Age: 55 Year
  Sex: Female

DRUGS (19)
  1. LUCENTIS [Suspect]
     Indication: AGE-RELATED MACULAR DEGENERATION
     Dosage: IN LEFT EYE. DATE OF MOST RECENT INJECTION :07/JUN/2013.
     Route: 031
     Dates: start: 20130129
  2. LUCENTIS [Suspect]
     Indication: AGE-RELATED MACULAR DEGENERATION
     Route: 031
     Dates: start: 20140117
  3. LUCENTIS [Suspect]
     Indication: MACULAR DEGENERATION
  4. LUCENTIS [Suspect]
     Indication: AGE-RELATED MACULAR DEGENERATION
  5. AVASTIN [Suspect]
     Indication: AGE-RELATED MACULAR DEGENERATION
     Dosage: LEFT EYE, START JUNE OR JULY FOR 3 TREATMENTS
     Route: 065
     Dates: start: 2011, end: 2011
  6. CELEXA (UNITED STATES) [Concomitant]
  7. ASA [Concomitant]
     Route: 065
  8. METFORMIN [Concomitant]
     Indication: DIABETES MELLITUS
     Dosage: WITH AM AND PM MEALS
     Route: 048
  9. METFORMIN [Concomitant]
     Route: 065
  10. LISINOPRIL/HCTZ [Concomitant]
     Indication: HYPERTENSION
     Route: 065
  11. CHANTIX [Concomitant]
     Route: 048
  12. LIPITOR [Concomitant]
     Route: 048
  13. DIAZEPAM [Concomitant]
     Dosage: ONE HALF
     Route: 065
  14. PROZAC [Concomitant]
     Indication: DEPRESSION
  15. PROZAC [Concomitant]
     Indication: BIPOLAR DISORDER
  16. EFFEXOR [Concomitant]
     Indication: DEPRESSION
  17. EFFEXOR [Concomitant]
     Indication: BIPOLAR DISORDER
  18. ZOLOFT [Concomitant]
     Indication: DEPRESSION
     Route: 065
     Dates: start: 201311
  19. ZOLOFT [Concomitant]
     Indication: ANXIETY

REACTIONS (35)
  - Eye infection [Unknown]
  - Vascular graft [Unknown]
  - Stent placement [Unknown]
  - Fatigue [Recovering/Resolving]
  - Deafness [Recovering/Resolving]
  - Sinus disorder [Recovering/Resolving]
  - Cough [Unknown]
  - Heart rate irregular [Recovering/Resolving]
  - Diarrhoea [Recovering/Resolving]
  - Polyuria [Unknown]
  - Mood altered [Unknown]
  - Stress [Unknown]
  - Headache [Unknown]
  - Arthralgia [Unknown]
  - Muscular weakness [Unknown]
  - Hypersensitivity [Unknown]
  - Dry eye [Unknown]
  - Macular degeneration [Unknown]
  - Cataract nuclear [Not Recovered/Not Resolved]
  - Eye oedema [Not Recovered/Not Resolved]
  - Visual acuity reduced [Recovered/Resolved]
  - Eye disorder [Recovered/Resolved]
  - Vision blurred [Recovered/Resolved]
  - Eye pain [Not Recovered/Not Resolved]
  - Therapeutic response decreased [Unknown]
  - Weight decreased [Unknown]
  - Fear [Unknown]
  - Muscle spasms [Unknown]
  - Somnolence [Unknown]
  - Influenza [Recovered/Resolved]
  - Viral myositis [Unknown]
  - Pain [Unknown]
  - Musculoskeletal stiffness [Not Recovered/Not Resolved]
  - Anxiety [Recovered/Resolved]
  - Peripheral arterial occlusive disease [Not Recovered/Not Resolved]
